APPROVED DRUG PRODUCT: VANDAZOLE
Active Ingredient: METRONIDAZOLE
Strength: 0.75%
Dosage Form/Route: GEL;VAGINAL
Application: N021806 | Product #001 | TE Code: BX
Applicant: TEVA PHARMACEUTICALS USA
Approved: May 20, 2005 | RLD: No | RS: Yes | Type: RX